FAERS Safety Report 14551456 (Version 3)
Quarter: 2018Q2

REPORT INFORMATION
  Report Type: Spontaneous
  Country: JP (occurrence: JP)
  Receive Date: 20180220
  Receipt Date: 20180409
  Transmission Date: 20180711
  Serious: Yes (Hospitalization, Other)
  Sender: FDA-Public Use
  Company Number: JP-BRISTOL-MYERS SQUIBB COMPANY-BMS-2017-107649

PATIENT
  Age: 71 Year
  Sex: Male
  Weight: 59 kg

DRUGS (5)
  1. KEYTRUDA [Concomitant]
     Active Substance: PEMBROLIZUMAB
     Indication: PRODUCT USED FOR UNKNOWN INDICATION
     Route: 065
  2. ELNEOPA NF NO.1 [Concomitant]
     Indication: DECREASED APPETITE
     Dosage: 2000 ML, UNK
     Route: 041
     Dates: start: 20180123, end: 20180206
  3. SALINE                             /00075401/ [Concomitant]
     Active Substance: SODIUM CHLORIDE
     Indication: PRODUCT USED FOR UNKNOWN INDICATION
     Dosage: 100 ML, QD
     Route: 065
     Dates: start: 20171122, end: 20180126
  4. PARSABIV [Concomitant]
     Active Substance: ETELCALCETIDE HYDROCHLORIDE
     Indication: MALIGNANT MELANOMA
     Dosage: 140 MG, UNK
     Route: 041
     Dates: start: 20170525, end: 20171113
  5. YERVOY [Suspect]
     Active Substance: IPILIMUMAB
     Indication: MALIGNANT MELANOMA
     Dosage: 200 MG, UNK
     Route: 041
     Dates: start: 20171122

REACTIONS (7)
  - Malignant neoplasm progression [Unknown]
  - Anaemia [Recovered/Resolved]
  - Thyroiditis [Recovering/Resolving]
  - Full blood count decreased [Recovered/Resolved]
  - Abdominal pain [Recovered/Resolved]
  - Tumour haemorrhage [Unknown]
  - Skin disorder [Not Recovered/Not Resolved]

NARRATIVE: CASE EVENT DATE: 20171124
